FAERS Safety Report 13232507 (Version 1)
Quarter: 2017Q1

REPORT INFORMATION
  Report Type: Report from Study
  Country: US (occurrence: US)
  Receive Date: 20170214
  Receipt Date: 20170214
  Transmission Date: 20170428
  Serious: No
  Sender: FDA-Public Use
  Company Number: US-AMAG PHARMACEUTICALS, INC.-AMAG201602393

PATIENT

DRUGS (3)
  1. MAKENA [Suspect]
     Active Substance: HYDROXYPROGESTERONE CAPROATE
     Indication: PREMATURE DELIVERY
     Dosage: 250 MG, WEEKLY
     Route: 030
  2. ANTI NAUSEA MEDICINE [Concomitant]
     Indication: NAUSEA
  3. PRENATAL [Concomitant]
     Active Substance: VITAMINS

REACTIONS (3)
  - Peripheral swelling [Unknown]
  - Contusion [Unknown]
  - Medication error [Unknown]
